FAERS Safety Report 5352451-9 (Version None)
Quarter: 2007Q2

REPORT INFORMATION
  Report Type: 
  Country: None (occurrence: None)
  Receive Date: 20070611
  Receipt Date: 20070605
  Transmission Date: 20071010
  Serious: Yes (Hospitalization)
  Sender: FDA-Public Use
  Company Number: A0654702A

PATIENT
  Age: 63 Year
  Sex: Female

DRUGS (8)
  1. MELPHALAN [Suspect]
     Indication: STEM CELL TRANSPLANT
     Route: 042
     Dates: start: 20070409, end: 20070410
  2. TOPROL-XL [Concomitant]
     Dosage: 50MG PER DAY
     Route: 048
  3. GABAPENTIN [Concomitant]
     Dosage: 300MG THREE TIMES PER DAY
     Route: 048
  4. ELAVIL [Concomitant]
  5. PROTONIX [Concomitant]
     Dosage: 40MG PER DAY
     Route: 048
  6. VICODIN [Concomitant]
  7. CENTRUM [Concomitant]
  8. CALTRATE [Concomitant]

REACTIONS (7)
  - CARDIAC FAILURE CONGESTIVE [None]
  - ENDOCARDITIS [None]
  - FEBRILE NEUTROPENIA [None]
  - FLUID OVERLOAD [None]
  - HYPOXIA [None]
  - MITRAL VALVE INCOMPETENCE [None]
  - RENAL FAILURE [None]
